FAERS Safety Report 8046927-3 (Version None)
Quarter: 2012Q1

REPORT INFORMATION
  Report Type: 
  Country: None (occurrence: None)
  Receive Date: 20120116
  Receipt Date: 20120106
  Transmission Date: 20120608
  Serious: Yes (Other)
  Sender: FDA-Public Use
  Company Number: US-BAYER-2011-049537

PATIENT
  Age: 18 Year
  Sex: Female
  Weight: 117.46 kg

DRUGS (4)
  1. YASMIN [Suspect]
     Dosage: UNK
     Dates: start: 20070101, end: 20070301
  2. IBUPROFEN [Concomitant]
     Indication: ANALGESIC THERAPY
     Dosage: 800 MG, QD
     Route: 048
     Dates: start: 20070101, end: 20070301
  3. NAPROXEN [Concomitant]
     Dosage: 500 MG, QD
     Route: 048
     Dates: start: 20070201
  4. YAZ [Suspect]
     Dosage: UNK
     Dates: start: 20060701, end: 20070101

REACTIONS (12)
  - PAIN [None]
  - EMOTIONAL DISTRESS [None]
  - FEAR [None]
  - DEEP VEIN THROMBOSIS [None]
  - PAIN IN EXTREMITY [None]
  - PULMONARY EMBOLISM [None]
  - DYSPNOEA [None]
  - ANXIETY [None]
  - CONTUSION [None]
  - HEART RATE INCREASED [None]
  - GENERAL PHYSICAL HEALTH DETERIORATION [None]
  - OEDEMA PERIPHERAL [None]
